FAERS Safety Report 7994414-0 (Version None)
Quarter: 2011Q4

REPORT INFORMATION
  Report Type: 
  Country: None (occurrence: None)
  Receive Date: 20111220
  Receipt Date: 20111216
  Transmission Date: 20120403
  Serious: Yes (Death, Hospitalization)
  Sender: FDA-Public Use
  Company Number: KR-BAYER-2011-078110

PATIENT
  Sex: Male

DRUGS (4)
  1. SORAFENIB (RAF KINASE INHIBITOR) [Suspect]
     Dosage: 600 MG DAILY
     Route: 048
     Dates: start: 20110430, end: 20110503
  2. SORAFENIB (RAF KINASE INHIBITOR) [Suspect]
     Dosage: 600 MG DAILY
     Route: 048
     Dates: start: 20110523, end: 20110629
  3. SORAFENIB (RAF KINASE INHIBITOR) [Suspect]
     Dosage: 400 MG DAILY
     Route: 048
     Dates: start: 20110504, end: 20110510
  4. SORAFENIB (RAF KINASE INHIBITOR) [Suspect]
     Indication: HEPATIC NEOPLASM MALIGNANT
     Dosage: 800 MG DAILY
     Route: 048
     Dates: start: 20110422, end: 20110429

REACTIONS (3)
  - CIRCULATORY COLLAPSE [None]
  - FALL [None]
  - CRANIOCEREBRAL INJURY [None]
